FAERS Safety Report 24607737 (Version 4)
Quarter: 2025Q3

REPORT INFORMATION
  Report Type: Spontaneous
  Country: JP (occurrence: JP)
  Receive Date: 20241112
  Receipt Date: 20250802
  Transmission Date: 20251020
  Serious: Yes (Other)
  Sender: ALEXION PHARMACEUTICALS
  Company Number: JP-ASTRAZENECA-240079173_063010_P_1

PATIENT
  Age: 83 Year
  Sex: Male
  Weight: 44 kg

DRUGS (15)
  1. DAPAGLIFLOZIN [Suspect]
     Active Substance: DAPAGLIFLOZIN
     Indication: Cardiac failure chronic
     Dosage: 10 MILLIGRAM, QD
     Dates: start: 20230425, end: 20240603
  2. DAPAGLIFLOZIN [Suspect]
     Active Substance: DAPAGLIFLOZIN
     Dosage: 0.5 DOSAGE FORM, QD
     Dates: start: 20240604, end: 20240618
  3. DAPAGLIFLOZIN [Suspect]
     Active Substance: DAPAGLIFLOZIN
     Dosage: 0.5 DOSAGE FORM, QD
     Dates: start: 20240709, end: 20240730
  4. DAPAGLIFLOZIN [Suspect]
     Active Substance: DAPAGLIFLOZIN
     Dosage: 0.5 DOSAGE FORM, QD
     Dates: start: 20240604, end: 20240618
  5. AMIODARONE [Suspect]
     Active Substance: AMIODARONE
     Indication: Cardiac failure chronic
     Dosage: 100 MILLIGRAM, QD
     Dates: start: 20231125
  6. ENTRESTO [Concomitant]
     Active Substance: SACUBITRIL\VALSARTAN
     Indication: Cardiac failure chronic
  7. VERQUVO [Concomitant]
     Active Substance: VERICIGUAT
     Indication: Cardiac failure chronic
     Dates: start: 20220314
  8. KREMEZIN [Concomitant]
     Active Substance: ACTIVATED CHARCOAL
     Dates: start: 20230603
  9. CLOPIDOGREL [Concomitant]
     Active Substance: CLOPIDOGREL BISULFATE
     Dates: start: 20200423
  10. Depas [Concomitant]
     Dates: start: 20080117
  11. FAMOTIDINE [Concomitant]
     Active Substance: FAMOTIDINE
     Dates: start: 20200423
  12. LICORICE ROOT EXTRACT\RHUBARB [Concomitant]
     Active Substance: LICORICE ROOT EXTRACT\RHUBARB
     Dates: start: 20220812
  13. CALCIUM POLYSTYRENE SULFONATE [Concomitant]
     Active Substance: CALCIUM POLYSTYRENE SULFONATE
     Dates: start: 20240416
  14. MAGNESIUM OXIDE [Concomitant]
     Active Substance: MAGNESIUM OXIDE
     Dates: start: 20220824
  15. AMIODARONE HYDROCHLORIDE [Suspect]
     Active Substance: AMIODARONE HYDROCHLORIDE
     Indication: Cardiac failure chronic
     Dates: start: 20231125

REACTIONS (7)
  - Neuropathy peripheral [Unknown]
  - Tinnitus [Unknown]
  - Head discomfort [Unknown]
  - Dizziness [Unknown]
  - Dehydration [Unknown]
  - Heat illness [Unknown]
  - Memory impairment [Unknown]

NARRATIVE: CASE EVENT DATE: 20240514
